FAERS Safety Report 7689300-X (Version None)
Quarter: 2011Q3

REPORT INFORMATION
  Report Type: 
  Country: None (occurrence: None)
  Receive Date: 20110817
  Receipt Date: 20110808
  Transmission Date: 20111222
  Serious: Yes (Hospitalization, Other)
  Sender: FDA-Public Use
  Company Number: US-ASTRAZENECA-2011SE19935

PATIENT
  Age: 39 Year
  Sex: Female

DRUGS (2)
  1. ZOMIG [Suspect]
     Route: 045
  2. MAXALT [Concomitant]

REACTIONS (5)
  - VIRAL INFECTION [None]
  - THROMBOSIS [None]
  - DRUG DOSE OMISSION [None]
  - MIGRAINE [None]
  - NASOPHARYNGITIS [None]
